FAERS Safety Report 5145261-9 (Version None)
Quarter: 2006Q4

REPORT INFORMATION
  Report Type: 
  Country: None (occurrence: None)
  Receive Date: 20060912
  Receipt Date: 20050826
  Transmission Date: 20070319
  Serious: Yes (Hospitalization)
  Sender: FDA-Public Use
  Company Number: 2005-BP-09699BP

PATIENT
  Age: 61 Year
  Sex: Male
  Weight: 69.85 kg

DRUGS (19)
  1. VIRAMUNE [Suspect]
     Indication: HIV INFECTION
     Dosage: SEE TEXT (200 MG,BID),PO
     Route: 048
     Dates: start: 19990730, end: 20050601
  2. ZIAGEN [Suspect]
     Indication: HIV INFECTION
     Dosage: SEE TEXT (300 MG,BID),PO
     Route: 048
     Dates: start: 20030624, end: 20050601
  3. ENANTHATE [Concomitant]
  4. DIPHENOXYLATE/ATROP [Concomitant]
  5. GEMFIBROZIL [Concomitant]
  6. NORVIR [Concomitant]
  7. GABAPENTIN [Concomitant]
  8. BUPROPION HCL [Concomitant]
  9. TRAZODONE HCL [Concomitant]
  10. NASAREL (FLUNISOLIDE) [Concomitant]
  11. PULMICORT [Concomitant]
  12. ALBUTEROL [Concomitant]
  13. ACYCLOVIR [Concomitant]
  14. DIAZEPAM [Concomitant]
  15. FISH OIL CONCENTRATE [Concomitant]
  16. ASCORBIC ACID [Concomitant]
  17. VITAMIN E [Concomitant]
  18. CALCIUM [Concomitant]
  19. SAW PALMETTO (SERENOA REPENS) [Concomitant]

REACTIONS (1)
  - HEPATITIS [None]
